FAERS Safety Report 14549757 (Version 2)
Quarter: 2018Q4

REPORT INFORMATION
  Report Type: Report from Study
  Country: None (occurrence: US)
  Receive Date: 20180219
  Receipt Date: 20181027
  Transmission Date: 20190204
  Serious: Yes (Hospitalization)
  Sender: FDA-Public Use
  Company Number: US-ABBVIE-18K-163-2258707-00

PATIENT
  Age: 88 Year
  Sex: Female

DRUGS (2)
  1. HUMIRA [Suspect]
     Active Substance: ADALIMUMAB
     Route: 058
     Dates: start: 2018
  2. HUMIRA [Suspect]
     Active Substance: ADALIMUMAB
     Indication: COLITIS ULCERATIVE
     Route: 058
     Dates: start: 20171110, end: 2018

REACTIONS (8)
  - Fall [Recovering/Resolving]
  - Mobility decreased [Not Recovered/Not Resolved]
  - Urinary tract infection [Recovering/Resolving]
  - Type 2 diabetes mellitus [Unknown]
  - Anxiety [Unknown]
  - Tremor [Unknown]
  - Skin laceration [Recovering/Resolving]
  - Diarrhoea [Recovering/Resolving]

NARRATIVE: CASE EVENT DATE: 2018
